FAERS Safety Report 7486756-2 (Version None)
Quarter: 2011Q2

REPORT INFORMATION
  Report Type: 
  Country: None (occurrence: None)
  Receive Date: 20110517
  Receipt Date: 20110506
  Transmission Date: 20111010
  Serious: Yes (Hospitalization, Other)
  Sender: FDA-Public Use
  Company Number: ES-ELI_LILLY_AND_COMPANY-ES201105001302

PATIENT
  Sex: Male

DRUGS (8)
  1. METFORMIN HCL [Concomitant]
     Dosage: UNK UG, UNK
  2. BYETTA [Suspect]
     Dosage: 10 UG, BID
     Dates: start: 20100620, end: 20110401
  3. BYETTA [Suspect]
     Indication: TYPE 2 DIABETES MELLITUS
     Dosage: 5 UG, UNK
     Dates: start: 20100519, end: 20100619
  4. NEXIUM [Concomitant]
  5. AMLODIPINE BESYLATE [Concomitant]
  6. TORSEMIDE [Concomitant]
  7. KALPRESS [Concomitant]
     Indication: HYPERTENSION
  8. ADALAT [Concomitant]

REACTIONS (7)
  - FALL [None]
  - HEAD INJURY [None]
  - HYPERKERATOSIS [None]
  - NOCTURIA [None]
  - PSORIASIS [None]
  - PANCREATITIS ACUTE [None]
  - DIZZINESS [None]
